FAERS Safety Report 4534514-0 (Version None)
Quarter: 2004Q4

REPORT INFORMATION
  Report Type: 
  Country: None (occurrence: None)
  Receive Date: 20041221
  Receipt Date: 20041221
  Transmission Date: 20050328
  Serious: Yes (Hospitalization)
  Sender: FDA-Public Use
  Company Number: None

PATIENT

DRUGS (1)
  1. LISINOPRIL [Suspect]
     Dosage: 40MG  DAILY ORAL
     Route: 048
     Dates: start: 20040401, end: 20040712

REACTIONS (1)
  - ANGIONEUROTIC OEDEMA [None]
